FAERS Safety Report 5732705-4 (Version None)
Quarter: 2008Q2

REPORT INFORMATION
  Report Type: 
  Country: None (occurrence: None)
  Receive Date: 20080509
  Receipt Date: 20080425
  Transmission Date: 20081010
  Serious: Yes (Other)
  Sender: FDA-Public Use
  Company Number: DE-BAYER-200817553GPV

PATIENT
  Age: 70 Year
  Sex: Female
  Weight: 76 kg

DRUGS (10)
  1. ALEMTUZUMAB [Suspect]
     Indication: CHRONIC LYMPHOCYTIC LEUKAEMIA RECURRENT
     Route: 058
  2. ALEMTUZUMAB [Suspect]
     Route: 058
     Dates: start: 20080421, end: 20080424
  3. ALEMTUZUMAB [Suspect]
     Route: 058
  4. FLUDARABINE PHOSPHATE [Suspect]
     Indication: CHRONIC LYMPHOCYTIC LEUKAEMIA RECURRENT
     Route: 042
     Dates: start: 20080423, end: 20080424
  5. CYCLOPHOSPHAMIDE [Suspect]
     Indication: CHRONIC LYMPHOCYTIC LEUKAEMIA RECURRENT
     Route: 042
     Dates: start: 20080423, end: 20080424
  6. VALTREX [Concomitant]
     Indication: ANTIVIRAL PROPHYLAXIS
     Dosage: TOTAL DAILY DOSE: 1500 MG
     Route: 048
     Dates: start: 20080421
  7. COTRIM [Concomitant]
     Indication: ANTIBIOTIC PROPHYLAXIS
     Route: 048
     Dates: start: 20080421
  8. PARACETAMOL [Concomitant]
     Indication: PREMEDICATION
     Route: 048
     Dates: end: 20080424
  9. TAVEGIL [Concomitant]
     Indication: PREMEDICATION
     Route: 042
     Dates: end: 20080424
  10. PREDNISOLON [Concomitant]
     Indication: PREMEDICATION
     Route: 042
     Dates: end: 20080424

REACTIONS (3)
  - ASTHENIA [None]
  - HYPERTENSION [None]
  - PYREXIA [None]
